FAERS Safety Report 5860391-1 (Version None)
Quarter: 2008Q3

REPORT INFORMATION
  Report Type: 
  Country: None (occurrence: None)
  Receive Date: 20080818
  Receipt Date: 20080624
  Transmission Date: 20090109
  Serious: No
  Sender: FDA-Public Use
  Company Number: WAES 0807USA00759

PATIENT
  Age: 60 Year
  Sex: Female
  Weight: 71.6683 kg

DRUGS (5)
  1. JANUVIA [Suspect]
     Indication: TYPE 2 DIABETES MELLITUS
     Dosage: PO
     Route: 048
     Dates: start: 20080304, end: 20080318
  2. ACTOS [Concomitant]
  3. CYTOMEL [Concomitant]
  4. VYTORIN [Concomitant]
  5. RANITIDINE [Concomitant]

REACTIONS (1)
  - NAUSEA [None]
